FAERS Safety Report 9721808 (Version 2)
Quarter: 2014Q1

REPORT INFORMATION
  Report Type: Spontaneous
  Country: US (occurrence: US)
  Receive Date: 20131201
  Receipt Date: 20140228
  Transmission Date: 20141002
  Serious: No
  Sender: FDA-Public Use
  Company Number: US-ABBVIE-13P-163-1167356-00

PATIENT
  Age: 66 Year
  Sex: Male
  Weight: 66.74 kg

DRUGS (10)
  1. ANDROGEL [Suspect]
     Indication: BLOOD TESTOSTERONE DECREASED
     Dosage: 4 PUMPS
     Route: 061
     Dates: start: 20130917, end: 20131101
  2. GLYBURIDE [Concomitant]
     Indication: PRODUCT USED FOR UNKNOWN INDICATION
  3. METFORMIN [Concomitant]
     Indication: DIABETES MELLITUS
     Route: 048
  4. PLAVIX [Concomitant]
     Indication: PRODUCT USED FOR UNKNOWN INDICATION
  5. FLOMAX [Concomitant]
     Indication: PRODUCT USED FOR UNKNOWN INDICATION
  6. SIMVASTATIN [Concomitant]
     Indication: BLOOD CHOLESTEROL INCREASED
  7. LEVEMIR [Concomitant]
     Indication: DIABETES MELLITUS
     Dosage: 10-12 UNITS, AT HOUR OF SLEEP
     Dates: start: 201308
  8. CENTRUM SILVER [Concomitant]
     Indication: PRODUCT USED FOR UNKNOWN INDICATION
  9. VITAMIN D [Concomitant]
     Indication: PRODUCT USED FOR UNKNOWN INDICATION
     Route: 048
  10. OMEGA 3 [Concomitant]
     Indication: PRODUCT USED FOR UNKNOWN INDICATION

REACTIONS (2)
  - Bone pain [Recovering/Resolving]
  - Bone pain [Recovering/Resolving]
